FAERS Safety Report 5387990-8 (Version None)
Quarter: 2007Q3

REPORT INFORMATION
  Report Type: 
  Country: None (occurrence: None)
  Receive Date: 20070716
  Receipt Date: 20061027
  Transmission Date: 20080115
  Serious: No
  Sender: FDA-Public Use
  Company Number: A0625009A

PATIENT
  Age: 25 Year
  Sex: Female

DRUGS (1)
  1. NICORETTE [Suspect]
     Dates: start: 20061026

REACTIONS (3)
  - CHEST DISCOMFORT [None]
  - COUGH [None]
  - MUSCLE TIGHTNESS [None]
